FAERS Safety Report 18250953 (Version 7)
Quarter: 2020Q4

REPORT INFORMATION
  Report Type: Spontaneous
  Country: US (occurrence: US)
  Receive Date: 20200910
  Receipt Date: 20201026
  Transmission Date: 20210113
  Serious: Yes (Death, Other)
  Sender: FDA-Public Use
  Company Number: US-SA-2020SA243087

PATIENT

DRUGS (20)
  1. SODIUM CHLORIDE 0.9% [Concomitant]
     Active Substance: SODIUM CHLORIDE
     Dosage: 250 ML (42ML/HR)
     Route: 065
     Dates: start: 20200218
  2. KYTRIL [Concomitant]
     Active Substance: GRANISETRON HYDROCHLORIDE
     Dosage: 1 MG, PRN (SLOW IV PUSH ONCE)
     Route: 042
     Dates: start: 20200320
  3. EMLA [Concomitant]
     Active Substance: LIDOCAINE\PRILOCAINE
     Dosage: UNK UNK, PRN
     Route: 061
     Dates: start: 20200217
  4. TURMERIC [CURCUMA LONGA] [Concomitant]
     Active Substance: HERBALS\TURMERIC
     Dosage: 1 DF
     Route: 048
  5. LIORESAL [Concomitant]
     Active Substance: BACLOFEN
     Indication: HICCUPS
     Dosage: 10 MG, TID
     Route: 048
     Dates: start: 20190820, end: 20190919
  6. VITAMIN D3 [Concomitant]
     Active Substance: CHOLECALCIFEROL
     Dosage: 1 DF, QD
     Route: 048
  7. DECADRON [Concomitant]
     Active Substance: DEXAMETHASONE
     Dosage: 1 DF, BID
     Route: 065
     Dates: start: 20200217
  8. ADDERALL [Concomitant]
     Active Substance: AMPHETAMINE ASPARTATE\AMPHETAMINE SULFATE\DEXTROAMPHETAMINE SACCHARATE\DEXTROAMPHETAMINE SULFATE
     Dosage: 1 DF, QD
     Route: 048
     Dates: start: 20200224
  9. HEPARIN LOCK FLUSH [Concomitant]
     Active Substance: HEPARIN SODIUM
     Dosage: 500 U, 1X (IV FLUSH)
     Route: 065
     Dates: start: 20191010, end: 20201010
  10. MULTIVITAMIN [ASCORBIC ACID;BIOTIN;CALCIUM PANTOTHENATE;CYANOCOBALAMIN [Concomitant]
     Active Substance: VITAMINS
  11. EMLA [Concomitant]
     Active Substance: LIDOCAINE\PRILOCAINE
     Indication: PAIN
     Dosage: UNK UNK, PRN
     Route: 061
     Dates: start: 20190612, end: 20190712
  12. LYRICA [Concomitant]
     Active Substance: PREGABALIN
     Dosage: 1 DF, BID
     Route: 048
  13. SODIUM CHLORIDE 0.9% [Concomitant]
     Active Substance: SODIUM CHLORIDE
     Dosage: 350 ML (350ML/HR)
     Route: 065
     Dates: start: 20200318
  14. HEPARIN LOCK FLUSH [Concomitant]
     Active Substance: HEPARIN SODIUM
     Dosage: 500 U, 1X (IV FLUSH)
     Route: 065
     Dates: start: 20190801, end: 20190801
  15. ATIVAN [Concomitant]
     Active Substance: LORAZEPAM
     Dosage: UNK UNK, PRN
  16. ZANTAC [Suspect]
     Active Substance: RANITIDINE HYDROCHLORIDE
     Indication: DYSPEPSIA
     Dosage: 150 MG, QD
     Route: 048
     Dates: start: 2015, end: 201906
  17. OMEPRAZOLE. [Concomitant]
     Active Substance: OMEPRAZOLE
     Dosage: UNK
     Route: 048
     Dates: start: 20200604
  18. DECADRON [Concomitant]
     Active Substance: DEXAMETHASONE
     Dosage: 12 MG, IV PIGBACK, ONCE 200ML/HR
     Route: 065
     Dates: start: 20191119
  19. DEXTROSE. [Concomitant]
     Active Substance: DEXTROSE
     Dosage: 250 ML, 42ML/HR
     Route: 065
     Dates: start: 20190619
  20. ZYPREXA [Concomitant]
     Active Substance: OLANZAPINE
     Dosage: 1 DF
     Route: 048
     Dates: start: 20200224

REACTIONS (50)
  - Metastases to lung [Not Recovered/Not Resolved]
  - Oesophageal adenocarcinoma stage IV [Not Recovered/Not Resolved]
  - Emotional distress [Unknown]
  - Dysphagia [Recovered/Resolved]
  - Oropharyngeal pain [Unknown]
  - Joint swelling [Unknown]
  - Dysphagia [Unknown]
  - Abdominal pain [Unknown]
  - Thyroid disorder [Unknown]
  - Wound [Unknown]
  - Anxiety [Unknown]
  - Metastases to spine [Not Recovered/Not Resolved]
  - Hepatic lesion [Unknown]
  - Chest pain [Recovered/Resolved]
  - Early satiety [Unknown]
  - Arthralgia [Unknown]
  - Neck pain [Unknown]
  - Deep vein thrombosis [Unknown]
  - Musculoskeletal discomfort [Unknown]
  - Tooth abscess [Unknown]
  - Social anxiety disorder [Unknown]
  - Metastatic neoplasm [Not Recovered/Not Resolved]
  - Hiccups [Recovered/Resolved]
  - Odynophagia [Unknown]
  - Vitamin D deficiency [Unknown]
  - Myalgia [Unknown]
  - Metastases to oesophagus [Not Recovered/Not Resolved]
  - Gastric cancer [Unknown]
  - Malaise [Unknown]
  - Chest discomfort [Unknown]
  - Injury [Unknown]
  - Abdominal pain upper [Unknown]
  - Decreased appetite [Unknown]
  - Back pain [Unknown]
  - Vomiting [Unknown]
  - Death [Fatal]
  - Metastases to stomach [Not Recovered/Not Resolved]
  - Anhedonia [Unknown]
  - Lymphadenopathy [Unknown]
  - Weight decreased [Unknown]
  - Asthenia [Unknown]
  - Pollakiuria [Unknown]
  - Neuropathy peripheral [Recovering/Resolving]
  - Cancer pain [Unknown]
  - Pain [Unknown]
  - Malnutrition [Unknown]
  - Dysphagia [Unknown]
  - Anosmia [Unknown]
  - Dyspnoea [Unknown]
  - Nausea [Unknown]

NARRATIVE: CASE EVENT DATE: 2019
